FAERS Safety Report 17341968 (Version 1)
Quarter: 2020Q1

REPORT INFORMATION
  Report Type: Spontaneous
  Country: US (occurrence: US)
  Receive Date: 20200129
  Receipt Date: 20200129
  Transmission Date: 20200409
  Serious: No
  Sender: FDA-Public Use
  Company Number: US-ALLERGAN-1918789US

PATIENT

DRUGS (3)
  1. EPINEPHRINE. [Concomitant]
     Active Substance: EPINEPHRINE
     Route: 065
  2. BOTOX [Suspect]
     Active Substance: ONABOTULINUMTOXINA
     Indication: PRODUCT USED FOR UNKNOWN INDICATION
     Dosage: UNK, SINGLE
     Route: 030
  3. LIDOCAINE. [Concomitant]
     Active Substance: LIDOCAINE
     Route: 065

REACTIONS (1)
  - Product preparation error [Unknown]
